FAERS Safety Report 8035364 (Version 4)
Quarter: 2017Q3

REPORT INFORMATION
  Report Type: Spontaneous
  Country: JP (occurrence: JP)
  Receive Date: 20110714
  Receipt Date: 20170711
  Transmission Date: 20171128
  Serious: Yes (Other)
  Sender: FDA-Public Use
  Company Number: JP-BAYER-2011-058975

PATIENT
  Age: 43 Year
  Sex: Female
  Weight: 52 kg

DRUGS (4)
  1. GLUCOSE [Suspect]
     Active Substance: DEXTROSE
     Indication: IRON DEFICIENCY ANAEMIA
     Dosage: DAILY DOSE 20 ML
     Route: 042
     Dates: start: 20110308, end: 20110608
  2. YAZ [Suspect]
     Active Substance: DROSPIRENONE\ETHINYL ESTRADIOL
     Indication: ENDOMETRIAL HYPERPLASIA
     Dosage: 1 DF, QD
     Route: 048
     Dates: start: 201103
  3. SYNPHASE [Concomitant]
     Dosage: UNK
     Route: 048
  4. IRON [Suspect]
     Active Substance: IRON
     Indication: IRON DEFICIENCY ANAEMIA
     Dosage: DAILY DOSE 100 MG
     Route: 042
     Dates: start: 20110308, end: 20110608

REACTIONS (8)
  - Abdominal pain upper [Recovered/Resolved]
  - Hypoaesthesia oral [Recovered/Resolved]
  - Dyspnoea [Recovered/Resolved]
  - Feeling abnormal [Recovered/Resolved]
  - Hypoaesthesia [Recovered/Resolved]
  - Dysphonia [Recovered/Resolved]
  - Shock symptom [Recovered/Resolved]
  - Laryngeal discomfort [Recovered/Resolved]

NARRATIVE: CASE EVENT DATE: 20110608
